FAERS Safety Report 6758774-0 (Version None)
Quarter: 2010Q2

REPORT INFORMATION
  Report Type: 
  Country: None (occurrence: None)
  Receive Date: 20100602
  Receipt Date: 20100519
  Transmission Date: 20101027
  Serious: Yes (Other)
  Sender: FDA-Public Use
  Company Number: 2010SP001457

PATIENT
  Sex: Female

DRUGS (1)
  1. OMNARIS [Suspect]
     Dosage: NASAL
     Route: 045

REACTIONS (1)
  - DYSPNOEA [None]
